FAERS Safety Report 13156034 (Version 1)
Quarter: 2017Q1

REPORT INFORMATION
  Report Type: Spontaneous
  Country: US (occurrence: US)
  Receive Date: 20170126
  Receipt Date: 20170126
  Transmission Date: 20170428
  Serious: No
  Sender: FDA-Public Use
  Company Number: US-ROCHE-1054276

PATIENT
  Age: 65 Year
  Sex: Female

DRUGS (4)
  1. DIAZEPAM. [Suspect]
     Active Substance: DIAZEPAM
     Indication: ANXIETY
     Route: 048
  2. DIAZEPAM. [Suspect]
     Active Substance: DIAZEPAM
     Route: 065
     Dates: start: 201110
  3. DIAZEPAM. [Suspect]
     Active Substance: DIAZEPAM
     Route: 065
  4. VALIUM [Suspect]
     Active Substance: DIAZEPAM
     Indication: ANXIETY
     Route: 048

REACTIONS (8)
  - Insomnia [Unknown]
  - Mental impairment [Unknown]
  - Heart rate increased [Unknown]
  - Nervousness [Unknown]
  - Hypertension [Unknown]
  - Amnesia [Unknown]
  - Abnormal behaviour [Unknown]
  - Antisocial behaviour [Unknown]
